FAERS Safety Report 19501303 (Version 1)
Quarter: 2021Q3

REPORT INFORMATION
  Report Type: Spontaneous
  Country: LT (occurrence: LT)
  Receive Date: 20210707
  Receipt Date: 20210707
  Transmission Date: 20211014
  Serious: Yes (Hospitalization)
  Sender: FDA-Public Use
  Company Number: LT-ACCORD-230655

PATIENT
  Age: 69 Year
  Sex: Female
  Weight: 70 kg

DRUGS (2)
  1. QUETIAPINE. [Suspect]
     Active Substance: QUETIAPINE
     Indication: PRODUCT USED FOR UNKNOWN INDICATION
     Dosage: STRENGTH: 25MG, AMOUNT OF TABLETS CONSUMED BY PATIENT IS UNCLEAR
     Route: 048
     Dates: start: 20210510, end: 20210510
  2. LORAZEPAM. [Suspect]
     Active Substance: LORAZEPAM
     Indication: PRODUCT USED FOR UNKNOWN INDICATION
     Dosage: STRENGTH: 1MG, AMOUNT OF TABLETS CONSUMED CONSUMED BY PATIENT IS UNCLEAR
     Route: 048
     Dates: start: 20210510, end: 20210510

REACTIONS (3)
  - Somnolence [Recovered/Resolved]
  - Medication error [Unknown]
  - Accidental overdose [Unknown]

NARRATIVE: CASE EVENT DATE: 20210510
